FAERS Safety Report 10351298 (Version 1)
Quarter: 2014Q3

REPORT INFORMATION
  Report Type: Report from Study
  Country: BR (occurrence: BR)
  Receive Date: 20140730
  Receipt Date: 20140730
  Transmission Date: 20150326
  Serious: Yes (Other)
  Sender: FDA-Public Use
  Company Number: BR-GLAXOSMITHKLINE-A1083236A

PATIENT
  Sex: Female
  Weight: 52 kg

DRUGS (7)
  1. BAMIFIX [Concomitant]
     Active Substance: BAMIFYLLINE HYDROCHLORIDE
  2. RITMONORM [Concomitant]
  3. SERETIDE [Suspect]
     Active Substance: FLUTICASONE FUROATE\SALMETEROL XINAFOATE
     Indication: PRODUCT USED FOR UNKNOWN INDICATION
     Dosage: 1PUFF TWICE PER DAY
     Route: 055
  4. AEROLIN [Concomitant]
     Active Substance: ALBUTEROL
  5. PREDNISONE. [Concomitant]
     Active Substance: PREDNISONE
  6. PANTOPRAZOLE [Concomitant]
     Active Substance: PANTOPRAZOLE SODIUM
  7. FORTEO [Concomitant]
     Active Substance: TERIPARATIDE

REACTIONS (7)
  - Memory impairment [Not Recovered/Not Resolved]
  - Inflammation [Unknown]
  - Femur fracture [Recovered/Resolved]
  - Pain in extremity [Recovering/Resolving]
  - Asthenia [Recovered/Resolved]
  - Bronchitis [Unknown]
  - Lower limb fracture [Recovered/Resolved]
